FAERS Safety Report 5114956-5 (Version None)
Quarter: 2006Q3

REPORT INFORMATION
  Report Type: 
  Country: None (occurrence: None)
  Receive Date: 20060926
  Receipt Date: 20050705
  Transmission Date: 20061208
  Serious: Yes (Other)
  Sender: FDA-Public Use
  Company Number: IL-NOVOPROD-245289

PATIENT
  Age: 83 Year
  Sex: Female
  Weight: 55 kg

DRUGS (10)
  1. NORDITROPIN SIMPLEXX 10 MG/ML [Suspect]
     Indication: RENAL FAILURE CHRONIC
     Dosage: 50 UG/KG, UNK
     Route: 058
     Dates: start: 20050309, end: 20050704
  2. CARVEDILOL [Concomitant]
     Dosage: 12.5 MG, QD
     Route: 048
  3. MONONITRAT [Concomitant]
     Dosage: 40 MG, QD
     Route: 048
     Dates: start: 20031230
  4. ENALAPRIL [Concomitant]
     Dosage: 2.5 MG, QD
     Route: 048
     Dates: start: 20020701
  5. ALFA D [Concomitant]
     Dosage: 1 UG, QD
     Route: 042
     Dates: start: 20031230
  6. EPOGEN [Concomitant]
     Dosage: 4000 U, UNK
     Route: 042
     Dates: start: 20020401
  7. ASPIRIN [Concomitant]
     Dosage: 100 MG, QD
     Route: 048
     Dates: start: 20031230
  8. TRIBEMIN [Concomitant]
     Dosage: 1 UNK, QD
     Dates: start: 20031230
  9. FOLIC ACID [Concomitant]
     Dosage: 5 MG, QD
     Dates: start: 20031230
  10. VITAMIN D [Concomitant]
     Dates: start: 20031230

REACTIONS (2)
  - BLOOD GLUCOSE INCREASED [None]
  - NEUROENDOCRINE CARCINOMA OF THE SKIN [None]
